FAERS Safety Report 7137868-4 (Version None)
Quarter: 2010Q4

REPORT INFORMATION
  Report Type: 
  Country: None (occurrence: None)
  Receive Date: 20101119
  Receipt Date: 20101104
  Transmission Date: 20110411
  Serious: Yes (Hospitalization, Other)
  Sender: FDA-Public Use
  Company Number: 021788

PATIENT
  Sex: Female

DRUGS (11)
  1. KEPPRA [Suspect]
     Dosage: (UPTITRATION), (DOSE INCREASE), (UPTITRATED ONCE MORE), (DOSE TAPERED)
     Dates: start: 20060223
  2. KEPPRA [Suspect]
     Dosage: (UPTITRATION), (DOSE INCREASE), (UPTITRATED ONCE MORE), (DOSE TAPERED)
     Dates: start: 20060301
  3. KEPPRA [Suspect]
     Dosage: (UPTITRATION), (DOSE INCREASE), (UPTITRATED ONCE MORE), (DOSE TAPERED)
     Dates: start: 20060301
  4. FELBAMATE [Suspect]
     Dosage: (DOSE UPTITRATED)
     Dates: start: 20060601
  5. FELBAMATE [Suspect]
     Dosage: (DOSE UPTITRATED)
     Dates: start: 20060701
  6. DIAZEPAM [Concomitant]
  7. PHENYTOIN [Concomitant]
  8. TAVOR /00273201/ [Concomitant]
  9. SABRIL [Concomitant]
  10. ZONEGRAN [Concomitant]
  11. LUMINAL /00023201/ [Concomitant]

REACTIONS (17)
  - ANTICONVULSANT DRUG LEVEL BELOW THERAPEUTIC [None]
  - ATONIC SEIZURES [None]
  - CIRCADIAN RHYTHM SLEEP DISORDER [None]
  - CONDITION AGGRAVATED [None]
  - CONVULSION [None]
  - DRUG INEFFECTIVE [None]
  - DYSPLASIA [None]
  - DYSPNOEA [None]
  - ELECTROENCEPHALOGRAM ABNORMAL [None]
  - GENERAL PHYSICAL HEALTH DETERIORATION [None]
  - HYPERSOMNIA [None]
  - LISTLESS [None]
  - LOSS OF CONSCIOUSNESS [None]
  - POST PROCEDURAL COMPLICATION [None]
  - RESTLESSNESS [None]
  - SEDATION [None]
  - STARING [None]
